FAERS Safety Report 7021651-4 (Version None)
Quarter: 2010Q3

REPORT INFORMATION
  Report Type: 
  Country: None (occurrence: None)
  Receive Date: 20100929
  Receipt Date: 20100922
  Transmission Date: 20110219
  Serious: Yes (Hospitalization, Other)
  Sender: FDA-Public Use
  Company Number: US-AMGEN-KDL440478

PATIENT
  Sex: Female

DRUGS (1)
  1. ENBREL [Suspect]
     Indication: PSORIASIS
     Route: 058
     Dates: end: 20100914

REACTIONS (13)
  - ABASIA [None]
  - ASTHENIA [None]
  - CELLULITIS [None]
  - CHILLS [None]
  - HEADACHE [None]
  - HYPOAESTHESIA [None]
  - JOINT RANGE OF MOTION DECREASED [None]
  - ORAL CANDIDIASIS [None]
  - PAIN [None]
  - PARAESTHESIA [None]
  - PSORIASIS [None]
  - RASH [None]
  - STAPHYLOCOCCAL INFECTION [None]
